FAERS Safety Report 15106970 (Version 1)
Quarter: 2018Q3

REPORT INFORMATION
  Report Type: Spontaneous
  Country: US (occurrence: US)
  Receive Date: 20180704
  Receipt Date: 20180704
  Transmission Date: 20181010
  Serious: Yes (Hospitalization, Other)
  Sender: FDA-Public Use
  Company Number: US-SHIRE-US201822841

PATIENT
  Age: 48 Year
  Sex: Female

DRUGS (1)
  1. GATTEX [Suspect]
     Active Substance: TEDUGLUTIDE\WATER
     Indication: SHORT-BOWEL SYNDROME
     Dosage: UNK, 1X/DAY:QD
     Route: 065
     Dates: start: 20180216

REACTIONS (3)
  - Sepsis [Recovering/Resolving]
  - Inappropriate schedule of drug administration [Unknown]
  - Device related infection [Unknown]

NARRATIVE: CASE EVENT DATE: 20180530
